FAERS Safety Report 8053974-4 (Version None)
Quarter: 2012Q1

REPORT INFORMATION
  Report Type: 
  Country: None (occurrence: None)
  Receive Date: 20120118
  Receipt Date: 20120103
  Transmission Date: 20120608
  Serious: Yes (Death)
  Sender: FDA-Public Use
  Company Number: DE-ASTELLAS-2011US006832

PATIENT
  Sex: Male
  Weight: 97 kg

DRUGS (1)
  1. ERLOTINIB HYDROCHLORIDE [Suspect]
     Indication: METASTATIC BRONCHIAL CARCINOMA
     Dosage: 150 MG, UID/QD
     Route: 048
     Dates: start: 20110804, end: 20110919

REACTIONS (4)
  - ASTHENIA [None]
  - RESPIRATORY DISTRESS [None]
  - GENERAL PHYSICAL HEALTH DETERIORATION [None]
  - PULMONARY VENO-OCCLUSIVE DISEASE [None]
